FAERS Safety Report 19139316 (Version 1)
Quarter: 2021Q2

REPORT INFORMATION
  Report Type: Spontaneous
  Country: US (occurrence: US)
  Receive Date: 20210415
  Receipt Date: 20210415
  Transmission Date: 20210717
  Serious: Yes (Disabling)
  Sender: FDA-Public Use
  Company Number: None

PATIENT
  Age: 35 Year
  Sex: Female
  Weight: 74.25 kg

DRUGS (5)
  1. AIMOVIG [Suspect]
     Active Substance: ERENUMAB-AOOE
     Indication: MIGRAINE
     Dates: start: 20181015, end: 20200214
  2. LITHIUM CARBONATE ER [Concomitant]
     Active Substance: LITHIUM CARBONATE
  3. MAGNESIUM [Concomitant]
     Active Substance: MAGNESIUM
  4. LAMICTAL [Concomitant]
     Active Substance: LAMOTRIGINE
  5. ESTRADIOL. [Concomitant]
     Active Substance: ESTRADIOL

REACTIONS (4)
  - Pain in jaw [None]
  - Therapy cessation [None]
  - Muscle spasms [None]
  - Pain [None]

NARRATIVE: CASE EVENT DATE: 20181020
